FAERS Safety Report 6725078-1 (Version None)
Quarter: 2010Q2

REPORT INFORMATION
  Report Type: 
  Country: None (occurrence: None)
  Receive Date: 20100514
  Receipt Date: 20100505
  Transmission Date: 20101027
  Serious: Yes (Other)
  Sender: FDA-Public Use
  Company Number: US-BAYER-201013377NA

PATIENT
  Age: 18 Year
  Sex: Female
  Weight: 43 kg

DRUGS (5)
  1. YAZ [Suspect]
     Indication: PREMENSTRUAL SYNDROME
     Route: 048
     Dates: start: 20071201, end: 20080401
  2. NEXIUM [Concomitant]
     Indication: GASTRITIS
  3. PROTONIX [Concomitant]
     Indication: GASTRITIS
  4. PREVACID [Concomitant]
  5. PRILOSEC [Concomitant]

REACTIONS (5)
  - ABDOMINAL PAIN [None]
  - CHOLECYSTITIS CHRONIC [None]
  - DECREASED APPETITE [None]
  - NAUSEA [None]
  - VAGINAL HAEMORRHAGE [None]
